FAERS Safety Report 9099524 (Version 3)
Quarter: 2013Q1

REPORT INFORMATION
  Report Type: Report from Study
  Country: US (occurrence: US)
  Receive Date: 20130214
  Receipt Date: 20130321
  Transmission Date: 20140127
  Serious: Yes (Death, Hospitalization)
  Sender: FDA-Public Use
  Company Number: US-ROCHE-1189699

PATIENT
  Sex: Male

DRUGS (2)
  1. CELLCEPT [Suspect]
     Indication: TRANSPLANT
     Route: 065
  2. CELLCEPT [Suspect]
     Route: 048

REACTIONS (2)
  - Vagus nerve disorder [Fatal]
  - Staphylococcal sepsis [Fatal]
